FAERS Safety Report 7819943-1 (Version None)
Quarter: 2011Q4

REPORT INFORMATION
  Report Type: 
  Country: None (occurrence: None)
  Receive Date: 20111018
  Receipt Date: 20110117
  Transmission Date: 20120403
  Serious: No
  Sender: FDA-Public Use
  Company Number: US-ASTRAZENECA-2011SE03080

PATIENT
  Age: 48 Year
  Sex: Female

DRUGS (2)
  1. SYMBICORT [Suspect]
     Indication: ASTHMA
     Dosage: 80/4.5 MCG TWO PUFFS TWICE A DAY
     Route: 055
  2. NEXIUM [Suspect]
     Route: 048

REACTIONS (3)
  - HEADACHE [None]
  - RHINORRHOEA [None]
  - HYPERSENSITIVITY [None]
